FAERS Safety Report 4533549-1 (Version None)
Quarter: 2005Q1

REPORT INFORMATION
  Report Type: 
  Country: None (occurrence: None)
  Receive Date: 20041206
  Receipt Date: 20041005
  Transmission Date: 20050727
  Serious: No
  Sender: FDA-Public Use
  Company Number: USA041080117

PATIENT
  Age: 68 Year
  Sex: Male

DRUGS (5)
  1. CYMBALTA [Suspect]
     Indication: NEUROPATHIC PAIN
     Dosage: 60 MG DAY
     Dates: start: 20040915, end: 20040919
  2. METFORMIN HCL [Concomitant]
  3. ACETYLSALICYLIC ACID SRT [Concomitant]
  4. XANAX (ALPRAZOLAM DUM) [Concomitant]
  5. NEURONTIN (GABAPENTIN PFIZER) [Concomitant]

REACTIONS (1)
  - STOMACH DISCOMFORT [None]
